FAERS Safety Report 5255801-7 (Version None)
Quarter: 2007Q1

REPORT INFORMATION
  Report Type: 
  Country: None (occurrence: None)
  Receive Date: 20070301
  Receipt Date: 20070221
  Transmission Date: 20070707
  Serious: Yes (Hospitalization)
  Sender: FDA-Public Use
  Company Number: 2007BI004009

PATIENT
  Age: 33 Year
  Sex: Female
  Weight: 76 kg

DRUGS (5)
  1. AVONEX [Suspect]
     Indication: MULTIPLE SCLEROSIS
     Dosage: 30 UG; QW; IM
     Route: 030
     Dates: start: 20060101
  2. CONTRACEPTIVE PILL [Concomitant]
  3. GLYCEROL 2.6% [Concomitant]
  4. FLUOXETINE [Concomitant]
  5. VITAMIN TABLETS [Concomitant]

REACTIONS (2)
  - BLISTER [None]
  - GASTRIC DISORDER [None]
